FAERS Safety Report 6583979-1 (Version None)
Quarter: 2010Q1

REPORT INFORMATION
  Report Type: 
  Country: None (occurrence: None)
  Receive Date: 20100213
  Receipt Date: 20100213
  Transmission Date: 20100710
  Serious: Yes (Hospitalization, Other)
  Sender: FDA-Public Use
  Company Number: None

PATIENT
  Sex: Female
  Weight: 82.4 kg

DRUGS (7)
  1. LEVOFLOXACIN [Suspect]
     Indication: BRONCHITIS
     Dosage: 500MG DAILY PO
     Route: 048
     Dates: start: 20081014, end: 20081015
  2. LOTREL [Concomitant]
  3. NEXIUM [Concomitant]
  4. INDOMETHACIN [Concomitant]
  5. ARICEPT [Concomitant]
  6. HYDROCODONE BITARTRATE AND ACETAMINOPHEN [Concomitant]
  7. NAMENDA [Concomitant]

REACTIONS (6)
  - DYSARTHRIA [None]
  - DYSSTASIA [None]
  - EYE ROLLING [None]
  - GAIT DISTURBANCE [None]
  - OEDEMA MOUTH [None]
  - WEIGHT BEARING DIFFICULTY [None]
